FAERS Safety Report 5377139-X (Version None)
Quarter: 2007Q2

REPORT INFORMATION
  Report Type: 
  Country: None (occurrence: None)
  Receive Date: 20070629
  Receipt Date: 20070629
  Transmission Date: 20071010
  Serious: Yes (Other)
  Sender: FDA-Public Use
  Company Number: None

PATIENT
  Age: 59 Year
  Sex: Female
  Weight: 106.5953 kg

DRUGS (1)
  1. QUININE SULFATE [Suspect]
     Indication: MUSCLE SPASMS
     Dosage: 1-2 AT BEDTIME DAILY PO
     Route: 048
     Dates: start: 20060523, end: 20070507

REACTIONS (1)
  - UNEVALUABLE EVENT [None]
